FAERS Safety Report 21753128 (Version 1)
Quarter: 2022Q4

REPORT INFORMATION
  Report Type: Spontaneous
  Country: CH (occurrence: CH)
  Receive Date: 20221220
  Receipt Date: 20221220
  Transmission Date: 20230113
  Serious: Yes (Other)
  Sender: FDA-Public Use
  Company Number: CH-SPC-000177

PATIENT
  Age: 52 Year
  Sex: Male

DRUGS (3)
  1. METRONIDAZOLE [Suspect]
     Active Substance: METRONIDAZOLE
     Indication: Liver abscess
     Route: 065
  2. CIPROFLOXACIN [Concomitant]
     Active Substance: CIPROFLOXACIN
     Indication: Liver abscess
     Route: 065
  3. AMOXICILLIN [Concomitant]
     Active Substance: AMOXICILLIN
     Indication: Liver abscess
     Route: 065

REACTIONS (5)
  - Toxicity to various agents [Unknown]
  - Product use in unapproved indication [Unknown]
  - Neuropathy peripheral [Recovering/Resolving]
  - Dysarthria [Recovering/Resolving]
  - Balance disorder [Unknown]
